FAERS Safety Report 8967730 (Version 1)
Quarter: 2012Q4

REPORT INFORMATION
  Report Type: Spontaneous
  Country: US (occurrence: None)
  Receive Date: 20121207
  Receipt Date: 20121207
  Transmission Date: 20130627
  Serious: Yes (Hospitalization, Other)
  Sender: FDA-Public Use
  Company Number: JPI-P-026335

PATIENT
  Age: 27 Year
  Sex: Male

DRUGS (2)
  1. XYREM [Suspect]
     Indication: NARCOLEPSY
     Dosage: 4.5 gm (2.25 gm, 2 in 1 D) , Oral
     Route: 048
     Dates: start: 20121116
  2. LORAZEPAM [Suspect]
     Indication: ANXIETY

REACTIONS (6)
  - Drug dependence [None]
  - Alcohol abuse [None]
  - Drug abuse [None]
  - Drug ineffective [None]
  - Intentional drug misuse [None]
  - Anxiety [None]
